FAERS Safety Report 6452033-1 (Version None)
Quarter: 2009Q4

REPORT INFORMATION
  Report Type: 
  Country: None (occurrence: None)
  Receive Date: 20091123
  Receipt Date: 20090807
  Transmission Date: 20100525
  Serious: Yes (Hospitalization)
  Sender: FDA-Public Use
  Company Number: US-AMGEN-QUU356003

PATIENT
  Sex: Male

DRUGS (8)
  1. ENBREL [Suspect]
     Indication: PSORIATIC ARTHROPATHY
     Route: 058
     Dates: start: 20061106, end: 20090530
  2. ENBREL [Suspect]
     Indication: PSORIASIS
  3. RISPERIDONE [Concomitant]
     Route: 048
  4. VALTREX [Concomitant]
     Route: 048
  5. VENLAFAXINE [Concomitant]
     Route: 048
  6. MULTI-VITAMINS [Concomitant]
     Route: 048
  7. ROXICET [Concomitant]
     Route: 048
  8. CEPHALEXIN [Concomitant]
     Route: 048

REACTIONS (1)
  - TONGUE NEOPLASM MALIGNANT STAGE UNSPECIFIED [None]
